FAERS Safety Report 12092631 (Version 1)
Quarter: 2016Q1

REPORT INFORMATION
  Report Type: Spontaneous
  Country: US (occurrence: None)
  Receive Date: 20160218
  Receipt Date: 20160218
  Transmission Date: 20160526
  Serious: No
  Sender: FDA-Public Use
  Company Number: None

PATIENT
  Sex: Female

DRUGS (1)
  1. CEFUROXIME AXETIL. [Suspect]
     Active Substance: CEFUROXIME AXETIL

REACTIONS (5)
  - Drug dispensing error [None]
  - Wrong drug administered [None]
  - Pyrexia [None]
  - Malaise [None]
  - Vomiting [None]

NARRATIVE: CASE EVENT DATE: 2015
